FAERS Safety Report 18564563 (Version 1)
Quarter: 2020Q4

REPORT INFORMATION
  Report Type: Report from Study
  Country: TW (occurrence: TW)
  Receive Date: 20201201
  Receipt Date: 20201201
  Transmission Date: 20210114
  Serious: Yes (Other)
  Sender: FDA-Public Use
  Company Number: TW-GLAXOSMITHKLINE-TW2020APC233819

PATIENT
  Sex: Male

DRUGS (1)
  1. MEPOLIZUMAB [Suspect]
     Active Substance: MEPOLIZUMAB
     Indication: ASTHMA
     Dosage: 100 MG, Z, Q4 WEEKS
     Route: 058
     Dates: start: 20200618

REACTIONS (4)
  - Rhinorrhoea [Unknown]
  - Hypoxia [Unknown]
  - Insomnia [Unknown]
  - Heart rate decreased [Unknown]
